FAERS Safety Report 4670591-4 (Version None)
Quarter: 2005Q2

REPORT INFORMATION
  Report Type: 
  Country: None (occurrence: None)
  Receive Date: 20050523
  Receipt Date: 20041208
  Transmission Date: 20051028
  Serious: No
  Sender: FDA-Public Use
  Company Number: 9458

PATIENT
  Age: 75 Year
  Sex: Male

DRUGS (2)
  1. METHOTREXATE [Suspect]
     Indication: DESMOID TUMOUR
     Dosage: 50 MG WEEKLY
     Route: 042
  2. VINBLASTINE [Concomitant]
     Indication: DESMOID TUMOUR
     Dosage: 10 MG WEEKLY
     Route: 042

REACTIONS (3)
  - FATIGUE [None]
  - LEUKOPENIA [None]
  - NAUSEA [None]
